FAERS Safety Report 17922143 (Version 1)
Quarter: 2020Q2

REPORT INFORMATION
  Report Type: Spontaneous
  Country: US (occurrence: US)
  Receive Date: 20200622
  Receipt Date: 20200622
  Transmission Date: 20200714
  Serious: No
  Sender: FDA-Public Use
  Company Number: US-LUPIN PHARMACEUTICALS INC.-2019-06746

PATIENT
  Age: 72 Year
  Sex: Male
  Weight: 94 kg

DRUGS (2)
  1. DONEPEZIL HYDROCHLORIDE TABLETS 23 MG [Suspect]
     Active Substance: DONEPEZIL HYDROCHLORIDE
     Dosage: 23 MILLIGRAM, QD
     Route: 048
  2. DONEPEZIL HYDROCHLORIDE TABLETS 23 MG [Suspect]
     Active Substance: DONEPEZIL HYDROCHLORIDE
     Indication: AMNESIA
     Dosage: 23 MILLIGRAM, QD
     Route: 048
     Dates: start: 201604

REACTIONS (4)
  - Cough [Not Recovered/Not Resolved]
  - Product packaging quantity issue [Unknown]
  - Throat irritation [Not Recovered/Not Resolved]
  - Weight decreased [Recovering/Resolving]

NARRATIVE: CASE EVENT DATE: 2016
